FAERS Safety Report 5720872-8 (Version None)
Quarter: 2008Q2

REPORT INFORMATION
  Report Type: 
  Country: None (occurrence: None)
  Receive Date: 20080425
  Receipt Date: 20080425
  Transmission Date: 20081010
  Serious: Yes (Disabling)
  Sender: FDA-Public Use
  Company Number: None

PATIENT
  Sex: Male
  Weight: 92.0802 kg

DRUGS (2)
  1. GEODON [Suspect]
     Indication: AUTISM
     Dosage: 20MG BID PO
     Route: 048
     Dates: start: 20080313, end: 20080407
  2. ZIPRASIDINE [Concomitant]

REACTIONS (1)
  - JAUNDICE [None]
